FAERS Safety Report 16642169 (Version 1)
Quarter: 2019Q3

REPORT INFORMATION
  Report Type: Spontaneous
  Country: ES (occurrence: ES)
  Receive Date: 20190729
  Receipt Date: 20190729
  Transmission Date: 20191004
  Serious: Yes (Other)
  Sender: FDA-Public Use
  Company Number: ES-SAKK-2019SA197007AA

PATIENT
  Age: 49 Year
  Sex: Female

DRUGS (9)
  1. JINARC [Suspect]
     Active Substance: TOLVAPTAN
     Dosage: 45 MG, UNK
     Route: 048
     Dates: start: 20180129
  2. JINARC [Suspect]
     Active Substance: TOLVAPTAN
     Dosage: 30 MG
     Dates: start: 20190611
  3. JINARC [Suspect]
     Active Substance: TOLVAPTAN
     Dosage: 15 MG
  4. CLEXANE [Suspect]
     Active Substance: ENOXAPARIN SODIUM
     Dosage: 40 MG, QD
  5. JINARC [Suspect]
     Active Substance: TOLVAPTAN
     Dosage: 60 MG
     Dates: start: 20190611
  6. JINARC [Suspect]
     Active Substance: TOLVAPTAN
     Dosage: 15 MG
     Dates: start: 20180129
  7. JINARC [Suspect]
     Active Substance: TOLVAPTAN
     Dosage: 30 MG
     Dates: start: 20180213, end: 20190409
  8. JINARC [Suspect]
     Active Substance: TOLVAPTAN
     Dosage: 90 MG
     Dates: start: 20180213, end: 20190409
  9. JINARC [Suspect]
     Active Substance: TOLVAPTAN
     Dosage: 45 MG

REACTIONS (4)
  - Foot deformity [Unknown]
  - Aspartate aminotransferase increased [Recovered/Resolved]
  - Gamma-glutamyltransferase increased [Recovered/Resolved]
  - Alanine aminotransferase increased [Recovered/Resolved]

NARRATIVE: CASE EVENT DATE: 20190409
